FAERS Safety Report 8867729 (Version 1)
Quarter: 2012Q4

REPORT INFORMATION
  Report Type: 
  Country: GB (occurrence: GB)
  Receive Date: 20121026
  Receipt Date: 20121026
  Transmission Date: 20130627
  Serious: Yes (Other)
  Sender: FDA-Public Use
  Company Number: GB-ASTRAZENECA-2012SE79606

PATIENT
  Age: 62 Year
  Sex: Female

DRUGS (2)
  1. ATENOLOL [Suspect]
     Indication: BLOOD PRESSURE ABNORMAL
     Route: 048
  2. ATENOLOL [Suspect]
     Indication: EXTRASYSTOLES
     Route: 048

REACTIONS (6)
  - Discomfort [Recovered/Resolved]
  - Rash [Unknown]
  - Psychotic disorder [Recovered/Resolved]
  - Feeling abnormal [Recovered/Resolved]
  - Dyspnoea [Recovered/Resolved]
  - Agitation [Recovered/Resolved]
